FAERS Safety Report 7723789-2 (Version None)
Quarter: 2011Q3

REPORT INFORMATION
  Report Type: 
  Country: None (occurrence: None)
  Receive Date: 20110901
  Receipt Date: 20110819
  Transmission Date: 20111222
  Serious: Yes (Hospitalization, Other)
  Sender: FDA-Public Use
  Company Number: PHHY2010BR14171

PATIENT
  Sex: Female
  Weight: 80 kg

DRUGS (6)
  1. EXFORGE [Suspect]
     Dosage: 1 DF, (160/10 MG ONE TABLET TWICE DAILY)
     Route: 048
     Dates: start: 20100101, end: 20100225
  2. ESTROFEM [Concomitant]
     Indication: MENOPAUSE
     Dosage: 2 MG, (ONE TABLET DAILY)
  3. EXFORGE [Suspect]
     Indication: HYPERTENSION
     Dosage: 1 DF, (160/5 MG ONE TABLET TWICE DAILY)
     Route: 048
     Dates: end: 20100101
  4. VENLAFAXINE HYDROCHLORIDE [Concomitant]
     Indication: PANIC DISORDER
     Dosage: 10 MG, ONE TABLET DAILY
     Route: 048
  5. TENORMIN [Concomitant]
     Indication: HYPERTENSION
     Dosage: 50 MG, (ONE TABLET DAILY)
     Route: 048
  6. TENORMIN [Concomitant]
     Dosage: 1 TABLET DAILY
     Route: 048
     Dates: start: 20100225

REACTIONS (6)
  - TREMOR [None]
  - HEADACHE [None]
  - PRURITUS [None]
  - HYPERTENSION [None]
  - PANIC DISORDER [None]
  - NAUSEA [None]
